FAERS Safety Report 16237004 (Version 2)
Quarter: 2019Q2

REPORT INFORMATION
  Report Type: Spontaneous
  Country: PT (occurrence: PT)
  Receive Date: 20190425
  Receipt Date: 20190426
  Transmission Date: 20190711
  Serious: Yes (Other)
  Sender: FDA-Public Use
  Company Number: PT-BIOGEN-2019BI00729630

PATIENT
  Age: 44 Year
  Sex: Female

DRUGS (2)
  1. TECFIDERA [Suspect]
     Active Substance: DIMETHYL FUMARATE
     Indication: RELAPSING-REMITTING MULTIPLE SCLEROSIS
     Route: 065
     Dates: start: 201701, end: 201707
  2. METRONIDAZOLE. [Suspect]
     Active Substance: METRONIDAZOLE
     Indication: PRODUCT USED FOR UNKNOWN INDICATION
     Route: 065

REACTIONS (7)
  - Monoparesis [Unknown]
  - Multiple sclerosis relapse [Unknown]
  - Encephalopathy [Unknown]
  - Central nervous system lesion [Unknown]
  - Cerebellar syndrome [Unknown]
  - Paraesthesia [Unknown]
  - Band sensation [Unknown]

NARRATIVE: CASE EVENT DATE: 201705
